FAERS Safety Report 14692851 (Version 1)
Quarter: 2018Q1

REPORT INFORMATION
  Report Type: Spontaneous
  Country: US (occurrence: US)
  Receive Date: 20180329
  Receipt Date: 20180329
  Transmission Date: 20180509
  Serious: Yes (Other)
  Sender: FDA-Public Use
  Company Number: US-CIPLA LTD.-2018US13686

PATIENT

DRUGS (10)
  1. GEMCITABINE [Suspect]
     Active Substance: GEMCITABINE\GEMCITABINE HYDROCHLORIDE
     Indication: HEPATIC CANCER METASTATIC
     Dosage: UNK
     Route: 065
  2. IMETELSTAT [Suspect]
     Active Substance: IMETELSTAT
     Indication: HEPATIC CANCER METASTATIC
     Dosage: UNK
     Route: 065
  3. DENOSUMAB [Suspect]
     Active Substance: DENOSUMAB
     Indication: HEPATIC CANCER METASTATIC
     Dosage: UNK
     Route: 065
  4. LETROZOLE. [Suspect]
     Active Substance: LETROZOLE
     Indication: HEPATIC CANCER METASTATIC
     Dosage: UNK
     Route: 065
  5. SORAFENIB [Suspect]
     Active Substance: SORAFENIB
     Indication: HEPATIC CANCER METASTATIC
     Dosage: UNK
     Route: 065
  6. CISPLATIN. [Suspect]
     Active Substance: CISPLATIN
     Indication: HEPATIC CANCER METASTATIC
     Dosage: UNK
     Route: 065
  7. TIVANTINIB [Suspect]
     Active Substance: TIVANTINIB
     Indication: HEPATIC CANCER METASTATIC
     Dosage: UNK
     Route: 065
  8. NECITUMUMAB [Suspect]
     Active Substance: NECITUMUMAB
     Indication: HEPATIC CANCER METASTATIC
     Dosage: UNK
     Route: 065
  9. EVEROLIMUS. [Suspect]
     Active Substance: EVEROLIMUS
     Indication: HEPATIC CANCER METASTATIC
     Dosage: UNK
     Route: 065
  10. LEUPROLIDE                         /00726901/ [Suspect]
     Active Substance: LEUPROLIDE
     Indication: HEPATIC CANCER METASTATIC
     Dosage: UNK
     Route: 065

REACTIONS (1)
  - Malignant neoplasm progression [Unknown]
